FAERS Safety Report 20120683 (Version 1)
Quarter: 2021Q4

REPORT INFORMATION
  Report Type: Spontaneous
  Country: US (occurrence: None)
  Receive Date: 20211126
  Receipt Date: 20211126
  Transmission Date: 20220303
  Serious: Yes (Life-Threatening, Disabling, Other)
  Sender: FDA-Public Use
  Company Number: None

PATIENT
  Age: 25 Year
  Sex: Female
  Weight: 79.2 kg

DRUGS (5)
  1. SECRET ANTIPERSPIRANT POWDER FRESH [Suspect]
     Active Substance: ALUMINUM CHLOROHYDRATE
     Indication: Personal hygiene
     Dates: start: 20210113, end: 20210714
  2. CLINDAMYCIN SOLUTIONS [Concomitant]
  3. UNSPECIFIED INGREDIENT [Concomitant]
     Active Substance: UNSPECIFIED INGREDIENT
  4. KEFLEX INJECTIONS [Concomitant]
  5. IBUPROFEN [Concomitant]
     Active Substance: IBUPROFEN

REACTIONS (5)
  - Hidradenitis [None]
  - Wound [None]
  - Infection [None]
  - Limb discomfort [None]
  - Nerve injury [None]

NARRATIVE: CASE EVENT DATE: 20210722
